FAERS Safety Report 13277224 (Version 2)
Quarter: 2017Q1

REPORT INFORMATION
  Report Type: Spontaneous
  Country: US (occurrence: US)
  Receive Date: 20170228
  Receipt Date: 20170324
  Transmission Date: 20170428
  Serious: Yes (Hospitalization)
  Sender: FDA-Public Use
  Company Number: US-SA-2017SA032086

PATIENT
  Age: 83 Year
  Sex: Male

DRUGS (9)
  1. ALIROCUMAB PREFILLED PEN [Concomitant]
     Active Substance: ALIROCUMAB
     Indication: BLOOD CHOLESTEROL INCREASED
     Dates: start: 20170127
  2. METOPROLOL. [Concomitant]
     Active Substance: METOPROLOL
     Dosage: STRENGTH: 100 MG
  3. PRALUENT [Suspect]
     Active Substance: ALIROCUMAB
     Indication: BLOOD CHOLESTEROL INCREASED
     Route: 058
     Dates: start: 20170127
  4. LOSARTAN POTASSIUM. [Concomitant]
     Active Substance: LOSARTAN POTASSIUM
     Dosage: STRENGTH 25 MG
  5. ALPRAZOLAM. [Concomitant]
     Active Substance: ALPRAZOLAM
     Dosage: STRENGTH: 0.25 MG
  6. LEVOTHYROXINE. [Concomitant]
     Active Substance: LEVOTHYROXINE
     Dosage: STRENGTH: 88 MCG
  7. LISINOPRIL. [Concomitant]
     Active Substance: LISINOPRIL
     Dosage: STRENGTH: 10 MG
  8. ASPIRIN. [Concomitant]
     Active Substance: ASPIRIN
  9. NITROGLYCERIN. [Concomitant]
     Active Substance: NITROGLYCERIN

REACTIONS (12)
  - Cholelithiasis [Unknown]
  - Bladder dilatation [Unknown]
  - Liver function test increased [Recovering/Resolving]
  - Cholelithiasis [Recovering/Resolving]
  - Abdominal pain upper [Recovered/Resolved]
  - Nausea [Unknown]
  - Pain [Recovered/Resolved]
  - Alanine aminotransferase increased [Recovering/Resolving]
  - Dizziness [Unknown]
  - Aspartate aminotransferase increased [Recovering/Resolving]
  - Blood bilirubin increased [Unknown]
  - Blood alkaline phosphatase increased [Unknown]

NARRATIVE: CASE EVENT DATE: 20170211
